FAERS Safety Report 5832510-4 (Version None)
Quarter: 2008Q3

REPORT INFORMATION
  Report Type: 
  Country: None (occurrence: None)
  Receive Date: 20080731
  Receipt Date: 20080716
  Transmission Date: 20090109
  Serious: Yes (Hospitalization)
  Sender: FDA-Public Use
  Company Number: DSM-2008-00654

PATIENT
  Age: 68 Year
  Sex: Male

DRUGS (6)
  1. OLMESARTAN MEDOXOMIL [Suspect]
     Indication: HYPERTENSION
     Dosage: 20 MG (20 MG, 1 IN 1 D), ORAL
     Route: 048
     Dates: start: 20071101, end: 20071201
  2. TORENTAL (PENTOXIFYLLINE) (400 MILLIGRAM) (PENTOXIFYLLINE) [Concomitant]
  3. FLAVIX (CLOPIDOGREL) (75 MILLIGRAM) (CLOPIDOGREL) [Concomitant]
  4. FONZYLANE (BUFLOMEDIL HYDROCHLORIDE) (150 MILLIGRAM) (BUFLOMEDIL HYDRO [Concomitant]
  5. ZOCOR (SIMVASTATIN) (40 MILLIGRAM) (SIMVASTATIN) [Concomitant]
  6. INEXIOUM (ESOMEPRAZOLE) (ESOMEPRAZOLE) [Concomitant]

REACTIONS (3)
  - DEHYDRATION [None]
  - GASTROENTERITIS [None]
  - RENAL FAILURE ACUTE [None]
